FAERS Safety Report 19039913 (Version 1)
Quarter: 2021Q1

REPORT INFORMATION
  Report Type: Other
  Country: US (occurrence: US)
  Receive Date: 20210323
  Receipt Date: 20210323
  Transmission Date: 20210420
  Serious: Yes (Life-Threatening, Hospitalization, Other)
  Sender: FDA-Public Use
  Company Number: US-ROCHE-2469900

PATIENT
  Age: 32 Year
  Sex: Male
  Weight: 136.2 kg

DRUGS (4)
  1. OCREVUS [Suspect]
     Active Substance: OCRELIZUMAB
     Indication: PROGRESSIVE MULTIPLE SCLEROSIS
     Dosage: FULL DOSES
     Route: 065
     Dates: start: 20190909
  2. OCREVUS [Suspect]
     Active Substance: OCRELIZUMAB
     Indication: RELAPSING MULTIPLE SCLEROSIS
     Dosage: HALF DOSES?ON 08/MAR/2019, HE RECEIVED OCRELIZUMAB INFUSION.
     Route: 065
     Dates: start: 20190222
  3. OCREVUS [Suspect]
     Active Substance: OCRELIZUMAB
     Dosage: ONGOING :NO
     Route: 042
     Dates: start: 201902
  4. OCREVUS [Suspect]
     Active Substance: OCRELIZUMAB
     Route: 065
     Dates: start: 20190222

REACTIONS (5)
  - Multiple sclerosis relapse [Not Recovered/Not Resolved]
  - Progressive multiple sclerosis [Unknown]
  - Amnesia [Not Recovered/Not Resolved]
  - Suicide attempt [Unknown]
  - COVID-19 [Unknown]

NARRATIVE: CASE EVENT DATE: 20190812
